FAERS Safety Report 13916750 (Version 2)
Quarter: 2017Q4

REPORT INFORMATION
  Report Type: Spontaneous
  Country: CN (occurrence: CN)
  Receive Date: 20170829
  Receipt Date: 20171004
  Transmission Date: 20180320
  Serious: Yes (Other)
  Sender: FDA-Public Use
  Company Number: CN-BAYER-2017-160555

PATIENT
  Age: 29 Year
  Sex: Female

DRUGS (1)
  1. YASMIN [Suspect]
     Active Substance: DROSPIRENONE\ETHINYL ESTRADIOL
     Indication: MENSTRUAL CYCLE MANAGEMENT
     Dosage: 1 DF, QD
     Route: 048
     Dates: start: 20170816, end: 20170817

REACTIONS (14)
  - Quadriplegia [Recovered/Resolved]
  - Nausea [Recovered/Resolved]
  - Product use in unapproved indication [None]
  - Inappropriate schedule of drug administration [None]
  - Vomiting [Recovered/Resolved]
  - Fear [Recovered/Resolved]
  - Aspartate aminotransferase increased [Recovered/Resolved]
  - Blood potassium decreased [Recovered/Resolved]
  - Alanine aminotransferase increased [Recovered/Resolved]
  - Vertigo [Recovered/Resolved]
  - Dizziness [Recovered/Resolved]
  - Hypomenorrhoea [Recovered/Resolved]
  - Loss of consciousness [Recovered/Resolved]
  - Electrolyte imbalance [Recovered/Resolved]

NARRATIVE: CASE EVENT DATE: 20170816
